FAERS Safety Report 8225696-8 (Version None)
Quarter: 2012Q1

REPORT INFORMATION
  Report Type: 
  Country: None (occurrence: None)
  Receive Date: 20120321
  Receipt Date: 20120312
  Transmission Date: 20120608
  Serious: Yes (Hospitalization, Other)
  Sender: FDA-Public Use
  Company Number: US-ELI_LILLY_AND_COMPANY-US201006003663

PATIENT
  Sex: Female

DRUGS (21)
  1. FORTEO [Suspect]
     Dosage: 20 UG, DAILY (1/D)
     Route: 058
  2. FORTEO [Suspect]
     Dosage: 20 UG, DAILY (1/D)
     Route: 058
  3. FORTEO [Suspect]
     Dosage: 20 UG, QD
  4. ADVAIR DISKUS 100/50 [Concomitant]
  5. TRIAMTERENE [Concomitant]
  6. ZITHROMAX [Concomitant]
  7. FORTEO [Suspect]
     Dosage: 20 UG, DAILY (1/D)
     Route: 058
  8. FORTEO [Suspect]
     Dosage: 20 UG, QD
  9. PREDNISONE TAB [Concomitant]
  10. VIACTIV /USA/ [Concomitant]
  11. ASPIRIN [Concomitant]
     Dosage: 81 MG, UNK
  12. FORTEO [Suspect]
     Dosage: 20 UG, DAILY (1/D)
     Route: 058
     Dates: end: 20110215
  13. FORTEO [Suspect]
     Dosage: 20 UG, QD
     Route: 058
  14. COQ10 [Concomitant]
  15. MULTI-VITAMIN [Concomitant]
  16. TUMS                               /00751519/ [Concomitant]
  17. FORTEO [Suspect]
     Indication: OSTEOPOROSIS
     Dosage: 20 UG, QD
     Route: 058
     Dates: start: 20100501
  18. FORTEO [Suspect]
     Dosage: 20 UG, QD
     Route: 058
  19. MOBIC [Concomitant]
  20. NASACORT [Concomitant]
  21. PRILOSEC [Concomitant]

REACTIONS (17)
  - TRANSIENT ISCHAEMIC ATTACK [None]
  - PAIN IN EXTREMITY [None]
  - MUSCULAR WEAKNESS [None]
  - HEAD INJURY [None]
  - FALL [None]
  - ASTHMA [None]
  - EXOSTOSIS [None]
  - UPPER LIMB FRACTURE [None]
  - INJECTION SITE ERYTHEMA [None]
  - NAUSEA [None]
  - INJECTION SITE HAEMATOMA [None]
  - SINUSITIS [None]
  - HAEMATOMA [None]
  - MALAISE [None]
  - ARTHROPATHY [None]
  - MUSCLE SPASMS [None]
  - BALANCE DISORDER [None]
